FAERS Safety Report 25765882 (Version 1)
Quarter: 2025Q3

REPORT INFORMATION
  Report Type: Spontaneous
  Country: US (occurrence: US)
  Receive Date: 20250905
  Receipt Date: 20250905
  Transmission Date: 20251021
  Serious: No
  Sender: DOMPE FARMACEUTICI
  Company Number: US-FARMAPROD-202407-2590

PATIENT
  Sex: Female

DRUGS (10)
  1. OXERVATE [Suspect]
     Active Substance: CENEGERMIN-BKBJ
     Indication: Neurotrophic keratopathy
     Route: 047
     Dates: start: 20240701
  2. OXERVATE [Suspect]
     Active Substance: CENEGERMIN-BKBJ
  3. MULTIVITAMIN 50 PLUS [Concomitant]
  4. LUTEIN-ZEAXANTHIN [Concomitant]
  5. ACYCLOVIR [Concomitant]
     Active Substance: ACYCLOVIR
  6. PROLIA [Concomitant]
     Active Substance: DENOSUMAB
  7. IVIZIA [Concomitant]
     Active Substance: POVIDONE
  8. ROCKLATAN [Concomitant]
     Active Substance: LATANOPROST\NETARSUDIL MESYLATE
  9. RESTASIS [Concomitant]
     Active Substance: CYCLOSPORINE
  10. DORZOLAMIDE\TIMOLOL [Concomitant]
     Active Substance: DORZOLAMIDE\TIMOLOL

REACTIONS (2)
  - Accidental overdose [Unknown]
  - Wrong technique in product usage process [Unknown]
